FAERS Safety Report 7875923-1 (Version None)
Quarter: 2011Q4

REPORT INFORMATION
  Report Type: 
  Country: None (occurrence: None)
  Receive Date: 20111031
  Receipt Date: 20111021
  Transmission Date: 20120403
  Serious: Yes (Other)
  Sender: FDA-Public Use
  Company Number: IE-VERTEX PHARMACEUTICALS INC.-AE-2011-002706

PATIENT
  Sex: Female

DRUGS (3)
  1. RIBAVIRIN [Concomitant]
     Indication: HEPATITIS C
     Route: 048
  2. VX-950 [Suspect]
     Indication: HEPATITIS C
     Route: 048
     Dates: start: 20110825
  3. PEGINTERFERON ALFA-2A [Concomitant]
     Indication: HEPATITIS C
     Route: 058

REACTIONS (5)
  - CHILLS [None]
  - FEELING HOT [None]
  - ACROCHORDON [None]
  - RASH GENERALISED [None]
  - ANAEMIA [None]
